FAERS Safety Report 23738607 (Version 1)
Quarter: 2024Q2

REPORT INFORMATION
  Report Type: Spontaneous
  Country: US (occurrence: US)
  Receive Date: 20240412
  Receipt Date: 20240412
  Transmission Date: 20240716
  Serious: Yes (Other)
  Sender: FDA-Public Use
  Company Number: US-PRINSTON PHARMACEUTICAL INC.-2024PRN00160

PATIENT
  Age: 84 Year
  Sex: Female

DRUGS (4)
  1. METOPROLOL SUCCINATE [Suspect]
     Active Substance: METOPROLOL SUCCINATE
  2. TORSEMIDE [Concomitant]
     Active Substance: TORSEMIDE
  3. SPIRONOLACTONE [Concomitant]
     Active Substance: SPIRONOLACTONE
  4. ENTRESTO [Concomitant]
     Active Substance: SACUBITRIL\VALSARTAN

REACTIONS (1)
  - BRASH syndrome [Recovered/Resolved]
